FAERS Safety Report 16497171 (Version 2)
Quarter: 2019Q3

REPORT INFORMATION
  Report Type: Spontaneous
  Country: US (occurrence: US)
  Receive Date: 20190628
  Receipt Date: 20190718
  Transmission Date: 20191004
  Serious: Yes (Other)
  Sender: FDA-Public Use
  Company Number: US-SUNOVION-2019SUN002594

PATIENT
  Age: 51 Year
  Sex: Male
  Weight: 76.42 kg

DRUGS (1)
  1. APTIOM [Suspect]
     Active Substance: ESLICARBAZEPINE ACETATE
     Indication: SEIZURE
     Dosage: 200 MG
     Route: 048
     Dates: start: 20180425, end: 20180510

REACTIONS (9)
  - Tremor [Unknown]
  - Seizure [Recovered/Resolved]
  - Panic attack [Unknown]
  - Haematochezia [Unknown]
  - Drug ineffective [Recovered/Resolved]
  - Delusion [Unknown]
  - Dizziness [Unknown]
  - Diarrhoea [Unknown]
  - Tinnitus [Unknown]

NARRATIVE: CASE EVENT DATE: 20180503
